FAERS Safety Report 25842576 (Version 1)
Quarter: 2025Q3

REPORT INFORMATION
  Report Type: Spontaneous
  Country: EU (occurrence: EU)
  Receive Date: 20250924
  Receipt Date: 20250924
  Transmission Date: 20251021
  Serious: Yes (Other)
  Sender: MYLAN
  Company Number: EU-009507513-2317253

PATIENT
  Age: 58 Year
  Sex: Male

DRUGS (12)
  1. PACLITAXEL [Suspect]
     Active Substance: PACLITAXEL
     Indication: Non-small cell lung cancer
     Dosage: 200 MILLIGRAM/SQ. METER, Q21D
     Dates: start: 20250627
  2. PACLITAXEL [Suspect]
     Active Substance: PACLITAXEL
     Dosage: 200 MILLIGRAM/SQ. METER, Q21D
     Route: 065
     Dates: start: 20250627
  3. PACLITAXEL [Suspect]
     Active Substance: PACLITAXEL
     Dosage: 200 MILLIGRAM/SQ. METER, Q21D
     Route: 065
     Dates: start: 20250627
  4. PACLITAXEL [Suspect]
     Active Substance: PACLITAXEL
     Dosage: 200 MILLIGRAM/SQ. METER, Q21D
     Dates: start: 20250627
  5. PEMBROLIZUMAB [Suspect]
     Active Substance: PEMBROLIZUMAB
     Indication: Non-small cell lung cancer
     Dosage: 200 MILLIGRAM, Q21D
     Dates: start: 20250717, end: 20250811
  6. PEMBROLIZUMAB [Suspect]
     Active Substance: PEMBROLIZUMAB
     Dosage: 200 MILLIGRAM, Q21D
     Route: 065
     Dates: start: 20250717, end: 20250811
  7. PEMBROLIZUMAB [Suspect]
     Active Substance: PEMBROLIZUMAB
     Dosage: 200 MILLIGRAM, Q21D
     Route: 065
     Dates: start: 20250717, end: 20250811
  8. PEMBROLIZUMAB [Suspect]
     Active Substance: PEMBROLIZUMAB
     Dosage: 200 MILLIGRAM, Q21D
     Dates: start: 20250717, end: 20250811
  9. CARBOPLATIN [Suspect]
     Active Substance: CARBOPLATIN
     Indication: Non-small cell lung cancer
  10. CARBOPLATIN [Suspect]
     Active Substance: CARBOPLATIN
     Route: 065
  11. CARBOPLATIN [Suspect]
     Active Substance: CARBOPLATIN
     Route: 065
  12. CARBOPLATIN [Suspect]
     Active Substance: CARBOPLATIN

REACTIONS (2)
  - Guillain-Barre syndrome [Recovering/Resolving]
  - Neurotoxicity [Recovering/Resolving]
